FAERS Safety Report 5606092-6 (Version None)
Quarter: 2008Q1

REPORT INFORMATION
  Report Type: 
  Country: None (occurrence: None)
  Receive Date: 20080123
  Receipt Date: 20080123
  Transmission Date: 20080703
  Serious: Yes (Other)
  Sender: FDA-Public Use
  Company Number: None

PATIENT
  Sex: Female
  Weight: 89.3586 kg

DRUGS (14)
  1. ABILIFY [Suspect]
     Indication: BIPOLAR DISORDER
     Dosage: 2.5 MG 1 NIGHTLY PO
     Route: 048
     Dates: start: 20041020, end: 20071024
  2. PRILOSEC [Concomitant]
  3. CLARITIN [Concomitant]
  4. CENESTIN -ESTROGEN- [Concomitant]
  5. MUCINEX [Concomitant]
  6. ADVAIR DISKUS 100/50 [Concomitant]
  7. MAXAIR -PIRBUTEROL INHALER- [Concomitant]
  8. QVAR -STEROID INHALER- [Concomitant]
  9. VITAMINS -MULTI, B COMPLEX, C, E, MAGNESIUM, SOMETIMES IRON- [Concomitant]
  10. OMEGA 3 FISH OIL [Concomitant]
  11. CALCIUM W/D [Concomitant]
  12. GARLIC [Concomitant]
  13. REGULAR STRENGTH ASPIRIN [Concomitant]
  14. EXTRA STRENGTH EXCEDRIN [Concomitant]

REACTIONS (52)
  - ABDOMINAL DISTENSION [None]
  - ABDOMINAL PAIN [None]
  - ABNORMAL BEHAVIOUR [None]
  - ACNE [None]
  - ALOPECIA [None]
  - AMNESIA [None]
  - ASTHMA [None]
  - BLOOD CHOLESTEROL INCREASED [None]
  - BODY TEMPERATURE FLUCTUATION [None]
  - CHOLELITHIASIS [None]
  - CONFUSIONAL STATE [None]
  - DISTURBANCE IN ATTENTION [None]
  - DROOLING [None]
  - DRY EYE [None]
  - DYSKINESIA [None]
  - DYSTONIA [None]
  - EAR PAIN [None]
  - ERUCTATION [None]
  - EYE IRRITATION [None]
  - FACIAL PALSY [None]
  - FALL [None]
  - FATIGUE [None]
  - FLATULENCE [None]
  - FORMICATION [None]
  - GAIT DISTURBANCE [None]
  - HAIR TEXTURE ABNORMAL [None]
  - HUNGER [None]
  - HYPERACUSIS [None]
  - HYPERREFLEXIA [None]
  - HYPERTENSION [None]
  - HYPOACUSIS [None]
  - HYPOAESTHESIA [None]
  - LICHEN SCLEROSUS [None]
  - MUSCLE SPASMS [None]
  - MUSCULAR WEAKNESS [None]
  - MUSCULOSKELETAL STIFFNESS [None]
  - NEURALGIA [None]
  - OBESITY [None]
  - PANIC ATTACK [None]
  - PARAESTHESIA [None]
  - PHARYNGOLARYNGEAL PAIN [None]
  - RESTLESSNESS [None]
  - SEBORRHOEIC DERMATITIS [None]
  - SKIN CHAPPED [None]
  - SKIN INFECTION [None]
  - SKIN ODOUR ABNORMAL [None]
  - SLEEP DISORDER [None]
  - TINNITUS [None]
  - TREMOR [None]
  - URINARY INCONTINENCE [None]
  - VISION BLURRED [None]
  - VISUAL DISTURBANCE [None]
